FAERS Safety Report 14760045 (Version 1)
Quarter: 2018Q2

REPORT INFORMATION
  Report Type: Spontaneous
  Country: US (occurrence: US)
  Receive Date: 20180413
  Receipt Date: 20180413
  Transmission Date: 20180711
  Serious: No
  Sender: FDA-Public Use
  Company Number: US-009507513-1804USA002498

PATIENT
  Age: 69 Year
  Sex: Male

DRUGS (3)
  1. MICAFUNGIN [Concomitant]
     Active Substance: MICAFUNGIN
     Indication: SPINAL OSTEOARTHRITIS
     Route: 042
  2. INVANZ [Suspect]
     Active Substance: ERTAPENEM SODIUM
     Indication: SPINAL OSTEOARTHRITIS
     Route: 042
  3. VORICONAZOLE. [Concomitant]
     Active Substance: VORICONAZOLE
     Indication: SPINAL OSTEOARTHRITIS
     Route: 042

REACTIONS (1)
  - Product use in unapproved indication [Unknown]
